FAERS Safety Report 9026014 (Version 2)
Quarter: 2013Q1

REPORT INFORMATION
  Report Type: Spontaneous
  Country: FR (occurrence: FR)
  Receive Date: 20130122
  Receipt Date: 20130205
  Transmission Date: 20140127
  Serious: Yes (Life-Threatening, Other)
  Sender: FDA-Public Use
  Company Number: FR-PFIZER INC-2013017904

PATIENT
  Age: 63 Year
  Sex: Male
  Weight: 85 kg

DRUGS (11)
  1. ARGANOVA [Suspect]
     Indication: HEPARIN-INDUCED THROMBOCYTOPENIA
     Dosage: 2 UG/KG, UNK
     Route: 041
     Dates: start: 20121209, end: 20121209
  2. MIDAZOLAM [Concomitant]
  3. SUFENTANIL [Concomitant]
  4. ADRENALIN [Concomitant]
  5. NORADRENALIN [Concomitant]
  6. SPEKTRAMOX [Concomitant]
  7. GENTAMICIN [Concomitant]
  8. METRONIDAZOL [Concomitant]
  9. PANTOPRAZOL [Concomitant]
  10. FUROSEMIDE [Concomitant]
  11. HYDROCORTISONE HEMISUCCINATE [Concomitant]

REACTIONS (5)
  - Coagulopathy [Recovered/Resolved]
  - Prothrombin time ratio decreased [Recovered/Resolved]
  - International normalised ratio increased [Recovered/Resolved]
  - Activated partial thromboplastin time prolonged [Recovered/Resolved]
  - Factor II deficiency [Recovered/Resolved]
